FAERS Safety Report 9844600 (Version 1)
Quarter: 2014Q1

REPORT INFORMATION
  Report Type: Spontaneous
  Country: US (occurrence: None)
  Receive Date: 20140123
  Receipt Date: 20140123
  Transmission Date: 20141002
  Serious: No
  Sender: FDA-Public Use
  Company Number: 2014P1000172

PATIENT
  Age: 66 Year
  Sex: Male
  Weight: 104.33 kg

DRUGS (12)
  1. INFUMORPH [Suspect]
     Indication: PAIN
     Route: 037
     Dates: start: 20100614, end: 20131231
  2. INFUMORPH [Suspect]
     Indication: PAIN
     Route: 037
     Dates: start: 20100614, end: 20131231
  3. INFUMORPH [Suspect]
     Indication: PAIN
     Route: 037
     Dates: start: 20100614, end: 20131231
  4. FUROSEMIDE [Concomitant]
  5. GABAPENTIN [Concomitant]
  6. ASA [Concomitant]
  7. BUSPAR [Concomitant]
  8. LEVOTHYROXINE [Concomitant]
  9. POTASSIUM CHLORIDE [Concomitant]
  10. NICOTINE PATCH [Concomitant]
  11. METFORMIN [Concomitant]
  12. METHYLPHENIDATE [Concomitant]

REACTIONS (9)
  - Feeling abnormal [None]
  - Chills [None]
  - Abdominal pain [None]
  - Nausea [None]
  - Back pain [None]
  - Condition aggravated [None]
  - Cholecystectomy [None]
  - Device failure [None]
  - Drug withdrawal syndrome [None]
